FAERS Safety Report 5141746-X (Version None)
Quarter: 2006Q4

REPORT INFORMATION
  Report Type: 
  Country: None (occurrence: None)
  Receive Date: 20061027
  Receipt Date: 20061005
  Transmission Date: 20070319
  Serious: Yes (Other)
  Sender: FDA-Public Use
  Company Number: AU200607002236

PATIENT
  Age: 5 Year
  Sex: Male

DRUGS (2)
  1. STRATTERA [Suspect]
     Indication: ATTENTION DEFICIT/HYPERACTIVITY DISORDER
     Dosage: 10 MG, DAILY (1/D)
     Dates: start: 20050909
  2. EPILIM (VALPROATE SODIUM) [Concomitant]

REACTIONS (2)
  - COAGULOPATHY [None]
  - DIARRHOEA [None]
